FAERS Safety Report 7515139-1 (Version None)
Quarter: 2011Q2

REPORT INFORMATION
  Report Type: 
  Country: None (occurrence: None)
  Receive Date: 20110601
  Receipt Date: 20100512
  Transmission Date: 20111010
  Serious: No
  Sender: FDA-Public Use
  Company Number: US-PFIZER INC-2009314690

PATIENT
  Sex: Female
  Weight: 56.689 kg

DRUGS (2)
  1. CHANTIX [Suspect]
     Dosage: UNK
     Dates: start: 20100101, end: 20100101
  2. CHANTIX [Suspect]
     Dosage: 0.5 MG, UNK
     Dates: start: 20091221, end: 20091222

REACTIONS (1)
  - FEELING ABNORMAL [None]
